FAERS Safety Report 22291775 (Version 1)
Quarter: 2023Q2

REPORT INFORMATION
  Report Type: Spontaneous
  Country: US (occurrence: None)
  Receive Date: 20230505
  Receipt Date: 20230505
  Transmission Date: 20230721
  Serious: Yes (unspecified)
  Sender: FDA-Public Use
  Company Number: None

PATIENT
  Age: 57 Year
  Sex: Female
  Weight: 94.05 kg

DRUGS (1)
  1. ELITEK [Suspect]
     Active Substance: RASBURICASE

REACTIONS (7)
  - Hypotension [None]
  - Presyncope [None]
  - Cardiac disorder [None]
  - Nausea [None]
  - Dizziness [None]
  - Visual impairment [None]
  - Pruritus [None]
